FAERS Safety Report 14140340 (Version 1)
Quarter: 2017Q4

REPORT INFORMATION
  Report Type: Spontaneous
  Country: IT (occurrence: IT)
  Receive Date: 20171030
  Receipt Date: 20171030
  Transmission Date: 20180321
  Serious: Yes (Hospitalization)
  Sender: FDA-Public Use
  Company Number: IT-BRISTOL-MYERS SQUIBB COMPANY-BMS-2017-094280

PATIENT
  Age: 94 Year
  Sex: Female

DRUGS (10)
  1. GLIBOMET [Concomitant]
     Active Substance: GLYBURIDE\METFORMIN HYDROCHLORIDE
     Indication: TYPE 2 DIABETES MELLITUS
     Dosage: 1 U, UNK
     Route: 048
  2. HALCION [Concomitant]
     Active Substance: TRIAZOLAM
     Indication: INSOMNIA
     Dosage: 1 U, UNK
     Route: 048
  3. DIBASE [Concomitant]
     Active Substance: CHOLECALCIFEROL
     Indication: HYPOVITAMINOSIS
     Route: 048
  4. LANSOPRAZOLE. [Concomitant]
     Active Substance: LANSOPRAZOLE
     Indication: GASTROOESOPHAGEAL REFLUX DISEASE
     Dosage: 1 U, UNK
     Route: 048
  5. CARDICOR [Concomitant]
     Active Substance: BISOPROLOL
     Indication: CARDIAC FAILURE
     Dosage: 1 U, UNK
     Route: 048
  6. CREON FORTE [Concomitant]
     Indication: PANCREATITIS
     Dosage: 1 U, UNK
     Route: 048
  7. ALTIAZEM [Concomitant]
     Active Substance: DILTIAZEM HYDROCHLORIDE
     Indication: HYPERTENSION
     Dosage: 1 U, UNK
     Route: 048
  8. COUMADIN [Suspect]
     Active Substance: WARFARIN SODIUM
     Indication: THROMBOSIS
     Dosage: 1 U, DAILY
     Route: 048
  9. ZOLOFT [Concomitant]
     Active Substance: SERTRALINE HYDROCHLORIDE
     Indication: DEPRESSION
     Dosage: 1 U, UNK
     Route: 048
  10. LUVION                             /00252501/ [Concomitant]
     Active Substance: CANRENOIC ACID
     Indication: HYPERALDOSTERONISM
     Dosage: 1 U, UNK
     Route: 048

REACTIONS (2)
  - International normalised ratio increased [Unknown]
  - Pyrexia [Unknown]

NARRATIVE: CASE EVENT DATE: 20171018
